FAERS Safety Report 4331178-6 (Version None)
Quarter: 2004Q2

REPORT INFORMATION
  Report Type: 
  Country: None (occurrence: None)
  Receive Date: 20040402
  Receipt Date: 20040329
  Transmission Date: 20050107
  Serious: Yes (Hospitalization)
  Sender: FDA-Public Use
  Company Number: 04-03-0453

PATIENT
  Age: 69 Year
  Sex: Female
  Weight: 73 kg

DRUGS (11)
  1. TRAMADOL HCL [Suspect]
  2. ETANERCEPT [Suspect]
     Indication: ARTHRITIS
     Dosage: 25MG X2 SUBCUTANEOUS
     Route: 058
     Dates: start: 20010101
  3. DOXAZOSIN MESYLATE [Concomitant]
  4. FENTANYL [Concomitant]
  5. FOLIC ACID [Concomitant]
  6. HYPROMELLOSE OPHTHALMIC [Concomitant]
  7. METHOTREXATE [Concomitant]
  8. INSULIN [Concomitant]
  9. AMILORIDE [Concomitant]
  10. PREDNISOLONE [Concomitant]
  11. TRAMADOL HCL [Concomitant]

REACTIONS (1)
  - MYOCARDIAL INFARCTION [None]
